FAERS Safety Report 7447071-6 (Version None)
Quarter: 2011Q2

REPORT INFORMATION
  Report Type: 
  Country: None (occurrence: None)
  Receive Date: 20110429
  Receipt Date: 20110426
  Transmission Date: 20111010
  Serious: Yes (Hospitalization)
  Sender: FDA-Public Use
  Company Number: IE-ABBOTT-11P-229-0717908-00

PATIENT
  Sex: Female

DRUGS (8)
  1. HUMIRA [Suspect]
  2. DELTACORTRIL [Concomitant]
     Indication: PRODUCT USED FOR UNKNOWN INDICATION
  3. HUMIRA [Suspect]
     Indication: INFLAMMATORY BOWEL DISEASE
     Dates: start: 20110101
  4. BONIVA [Concomitant]
     Indication: PRODUCT USED FOR UNKNOWN INDICATION
  5. HUMIRA [Suspect]
  6. ASACOLON [Concomitant]
     Indication: PRODUCT USED FOR UNKNOWN INDICATION
  7. CALCICHEW D3 FORTE [Concomitant]
     Indication: PRODUCT USED FOR UNKNOWN INDICATION
  8. DELTACORTRIL [Concomitant]

REACTIONS (2)
  - MADAROSIS [None]
  - COLITIS ULCERATIVE [None]
